FAERS Safety Report 23661624 (Version 2)
Quarter: 2024Q1

REPORT INFORMATION
  Report Type: Spontaneous
  Country: US (occurrence: US)
  Receive Date: 20240322
  Receipt Date: 20240326
  Transmission Date: 20240410
  Serious: Yes (Other)
  Sender: FDA-Public Use
  Company Number: US-ABBVIE-5685220

PATIENT
  Sex: Female
  Weight: 66 kg

DRUGS (1)
  1. LILETTA [Suspect]
     Active Substance: LEVONORGESTREL
     Indication: Contraception
     Dosage: TIME INTERVAL: AS NECESSARY: STRENGTH: 52MG
     Route: 015
     Dates: start: 20240105

REACTIONS (6)
  - Uterine haemorrhage [Not Recovered/Not Resolved]
  - Device expulsion [Unknown]
  - Asthenia [Not Recovered/Not Resolved]
  - Uterine spasm [Not Recovered/Not Resolved]
  - Pain [Not Recovered/Not Resolved]
  - Ovarian cyst [Not Recovered/Not Resolved]

NARRATIVE: CASE EVENT DATE: 20240101
